FAERS Safety Report 14298175 (Version 1)
Quarter: 2017Q4

REPORT INFORMATION
  Report Type: Spontaneous
  Country: US (occurrence: US)
  Receive Date: 20171218
  Receipt Date: 20171218
  Transmission Date: 20180321
  Serious: No
  Sender: FDA-Public Use
  Company Number: US-BTG INTERNATIONAL, LTD.-2017BTG01233

PATIENT

DRUGS (2)
  1. VARITHENA [Suspect]
     Active Substance: POLIDOCANOL
     Indication: PRODUCT USED FOR UNKNOWN INDICATION
     Dosage: 5 CC
     Dates: start: 20170411
  2. VARITHENA [Suspect]
     Active Substance: POLIDOCANOL
     Dosage: 5 CC

REACTIONS (2)
  - Product quality issue [Unknown]
  - Drug ineffective [Unknown]

NARRATIVE: CASE EVENT DATE: 20170411
